FAERS Safety Report 10761242 (Version 1)
Quarter: 2015Q1

REPORT INFORMATION
  Report Type: Spontaneous
  Country: US (occurrence: None)
  Receive Date: 20150128
  Receipt Date: 20150128
  Transmission Date: 20150721
  Serious: Yes (Other)
  Sender: FDA-Public Use
  Company Number: 1316947

PATIENT
  Age: 53 Year
  Sex: Male

DRUGS (3)
  1. BENDAMUSTINE (BENDAMUSTINE) (BENDAMUSTINE) [Concomitant]
     Active Substance: BENDAMUSTINE
  2. RITUXAN [Suspect]
     Active Substance: RITUXIMAB
     Indication: CHRONIC LYMPHOCYTIC LEUKAEMIA
     Dosage: (EVERY 6 MONTHS), UNKNOWN
  3. OFATUMUMAB (OFATUMUMAB) (UNKNOWN) [Concomitant]
     Active Substance: OFATUMUMAB

REACTIONS (1)
  - Chills [None]
